FAERS Safety Report 6760730-3 (Version None)
Quarter: 2010Q2

REPORT INFORMATION
  Report Type: 
  Country: None (occurrence: None)
  Receive Date: 20100608
  Receipt Date: 20100528
  Transmission Date: 20101027
  Serious: Yes (Other)
  Sender: FDA-Public Use
  Company Number: US-CUBIST-2010S1000341

PATIENT
  Age: 67 Year
  Sex: Female
  Weight: 58.51 kg

DRUGS (6)
  1. CUBICIN [Suspect]
     Indication: INFECTION
     Route: 042
  2. INVANZ [Suspect]
     Indication: INFECTION
  3. TIGECYCLINE [Concomitant]
     Indication: INFECTION
     Route: 042
  4. VANCOMYCIN [Concomitant]
     Indication: INFECTION
  5. MORPHINE [Concomitant]
     Indication: PAIN
  6. TYLENOL PM /01088101/ [Concomitant]
     Indication: DRUG USE FOR UNKNOWN INDICATION
     Route: 048

REACTIONS (1)
  - WEIGHT DECREASED [None]
